FAERS Safety Report 9629288 (Version 1)
Quarter: 2013Q4

REPORT INFORMATION
  Report Type: Spontaneous
  Country: US (occurrence: US)
  Receive Date: 20131017
  Receipt Date: 20131017
  Transmission Date: 20140711
  Serious: No
  Sender: FDA-Public Use
  Company Number: US-ASTRAZENECA-2013SE69850

PATIENT
  Age: 62 Year
  Sex: Female
  Weight: 87.5 kg

DRUGS (7)
  1. CRESTOR [Suspect]
     Indication: BLOOD CHOLESTEROL ABNORMAL
     Route: 048
     Dates: start: 201308
  2. HUMALOG [Concomitant]
     Indication: DIABETES MELLITUS
  3. LANTUS [Concomitant]
     Indication: DIABETES MELLITUS
  4. CLONODINE [Concomitant]
     Indication: BLOOD PRESSURE ABNORMAL
  5. ASPRIN [Concomitant]
     Indication: CARDIAC DISORDER
  6. ONE A DAY WOMENS [Concomitant]
     Indication: HYPOVITAMINOSIS
     Dosage: DAILY
  7. FISH OIL [Concomitant]
     Dosage: DAILY

REACTIONS (4)
  - Alopecia [Not Recovered/Not Resolved]
  - Alopecia [Not Recovered/Not Resolved]
  - Pruritus [Not Recovered/Not Resolved]
  - Rash [Not Recovered/Not Resolved]
